FAERS Safety Report 21242855 (Version 2)
Quarter: 2022Q3

REPORT INFORMATION
  Report Type: Spontaneous
  Country: US (occurrence: US)
  Receive Date: 20220823
  Receipt Date: 20220914
  Transmission Date: 20221027
  Serious: Yes (Hospitalization)
  Sender: FDA-Public Use
  Company Number: US-PFIZER INC-PV202200047238

PATIENT
  Age: 50 Year
  Sex: Male

DRUGS (1)
  1. INLYTA [Suspect]
     Active Substance: AXITINIB
     Dosage: UNK
     Dates: end: 202209

REACTIONS (5)
  - Infection [Unknown]
  - Dry skin [Unknown]
  - Stomatitis [Unknown]
  - Taste disorder [Unknown]
  - Decreased appetite [Unknown]
